FAERS Safety Report 11350257 (Version 2)
Quarter: 2015Q3

REPORT INFORMATION
  Report Type: Spontaneous
  Country: AR (occurrence: AR)
  Receive Date: 20150807
  Receipt Date: 20150901
  Transmission Date: 20151125
  Serious: Yes (Other)
  Sender: FDA-Public Use
  Company Number: AR-PFIZER INC-2015252884

PATIENT
  Age: 77 Year
  Sex: Male

DRUGS (2)
  1. SUTENT [Suspect]
     Active Substance: SUNITINIB MALATE
     Indication: METASTATIC RENAL CELL CARCINOMA
     Dosage: 25 MG, 1X/DAY CYCLIC (4/2)
     Dates: start: 20150629
  2. SUTENT [Suspect]
     Active Substance: SUNITINIB MALATE
     Dosage: 12.5 MG, 2X/DAY CYCLIC (4/2)
     Dates: start: 20150629

REACTIONS (13)
  - Depressed mood [Recovering/Resolving]
  - Disorientation [Recovering/Resolving]
  - Blood pressure fluctuation [Recovering/Resolving]
  - Eating disorder [Recovering/Resolving]
  - Haemorrhage urinary tract [Recovered/Resolved]
  - Diarrhoea [Recovering/Resolving]
  - Protein total abnormal [Unknown]
  - Epistaxis [Recovered/Resolved]
  - Dehydration [Recovering/Resolving]
  - Hypertension [Recovering/Resolving]
  - Hypoglycaemia [Recovering/Resolving]
  - Immunosuppression [Recovering/Resolving]
  - General physical condition abnormal [Recovering/Resolving]

NARRATIVE: CASE EVENT DATE: 20150713
